FAERS Safety Report 9397118 (Version 2)
Quarter: 2014Q2

REPORT INFORMATION
  Report Type: Spontaneous
  Country: US (occurrence: US)
  Receive Date: 20130712
  Receipt Date: 20140512
  Transmission Date: 20141212
  Serious: No
  Sender: FDA-Public Use
  Company Number: US-PFIZER INC-2013201455

PATIENT
  Age: 50 Year
  Sex: Female

DRUGS (5)
  1. LEVOXYL [Suspect]
     Dosage: UNK
  2. VITAMIN C [Concomitant]
     Dosage: UNK
  3. VITAMIN D [Concomitant]
     Dosage: UNK
  4. VITAMIN E [Concomitant]
     Dosage: UNK
  5. IRON [Concomitant]
     Dosage: UNK

REACTIONS (2)
  - Weight decreased [Unknown]
  - Therapeutic response changed [Unknown]
